FAERS Safety Report 17195806 (Version 8)
Quarter: 2021Q1

REPORT INFORMATION
  Report Type: Report from Study
  Country: JP (occurrence: JP)
  Receive Date: 20191224
  Receipt Date: 20210208
  Transmission Date: 20210419
  Serious: Yes (Other)
  Sender: FDA-Public Use
  Company Number: NVSJ2019JP005601

PATIENT
  Age: 10 Year
  Sex: Female
  Weight: 41.9 kg

DRUGS (27)
  1. ILARIS [Suspect]
     Active Substance: CANAKINUMAB
     Dosage: 180 MG
     Route: 058
     Dates: start: 20181213
  2. ILARIS [Suspect]
     Active Substance: CANAKINUMAB
     Dosage: 210 MG
     Route: 058
     Dates: start: 20190423
  3. ILARIS [Suspect]
     Active Substance: CANAKINUMAB
     Dosage: 240 MG
     Route: 058
     Dates: start: 20191210
  4. ILARIS [Suspect]
     Active Substance: CANAKINUMAB
     Dosage: 150 MG
     Route: 058
     Dates: start: 20200114
  5. ILARIS [Suspect]
     Active Substance: CANAKINUMAB
     Dosage: 240 MG
     Route: 058
     Dates: start: 20200213
  6. ILARIS [Suspect]
     Active Substance: CANAKINUMAB
     Dosage: 150 MG
     Route: 058
     Dates: start: 20200609
  7. LIDOMEX [Concomitant]
     Active Substance: PREDNISOLONE VALERATE ACETATE
     Indication: PRODUCT USED FOR UNKNOWN INDICATION
     Dosage: 10 G, UNK
     Route: 065
     Dates: start: 20180710
  8. ILARIS [Suspect]
     Active Substance: CANAKINUMAB
     Dosage: 180 MG
     Route: 058
     Dates: start: 20180802
  9. ILARIS [Suspect]
     Active Substance: CANAKINUMAB
     Dosage: 210 MG
     Route: 058
     Dates: start: 20190319
  10. ILARIS [Suspect]
     Active Substance: CANAKINUMAB
     Dosage: 180 MG
     Route: 058
     Dates: start: 20180904
  11. ILARIS [Suspect]
     Active Substance: CANAKINUMAB
     Dosage: 180 MG
     Route: 058
     Dates: start: 20190212
  12. HIRUDOID [Concomitant]
     Active Substance: GLYCOSAMINOGLYCANS
     Indication: PRODUCT USED FOR UNKNOWN INDICATION
     Dosage: 2 G
     Route: 065
     Dates: start: 20200114, end: 20200312
  13. ILARIS [Suspect]
     Active Substance: CANAKINUMAB
     Dosage: 180 MG
     Route: 058
     Dates: start: 20181107
  14. ILARIS [Suspect]
     Active Substance: CANAKINUMAB
     Dosage: 180 MG
     Route: 058
     Dates: start: 20190117
  15. ILARIS [Suspect]
     Active Substance: CANAKINUMAB
     Dosage: 150 MG
     Route: 058
     Dates: start: 20200414
  16. ILARIS [Suspect]
     Active Substance: CANAKINUMAB
     Dosage: 150 MG
     Route: 058
     Dates: start: 20200512
  17. ILARIS [Suspect]
     Active Substance: CANAKINUMAB
     Indication: STILL^S DISEASE
     Dosage: 165 MG
     Route: 058
     Dates: start: 20180710
  18. ILARIS [Suspect]
     Active Substance: CANAKINUMAB
     Dosage: 187.5 MG
     Route: 058
     Dates: start: 20181009
  19. ILARIS [Suspect]
     Active Substance: CANAKINUMAB
     Dosage: 210 MG
     Route: 058
     Dates: start: 20190723
  20. ILARIS [Suspect]
     Active Substance: CANAKINUMAB
     Dosage: 240 MG
     Route: 058
     Dates: start: 20190919
  21. ILARIS [Suspect]
     Active Substance: CANAKINUMAB
     Dosage: 240 MG
     Route: 058
     Dates: start: 20191008
  22. ILARIS [Suspect]
     Active Substance: CANAKINUMAB
     Dosage: 150 MG
     Route: 058
     Dates: start: 20200714
  23. ILARIS [Suspect]
     Active Substance: CANAKINUMAB
     Dosage: 210 MG
     Route: 058
     Dates: start: 20190528
  24. ILARIS [Suspect]
     Active Substance: CANAKINUMAB
     Dosage: 210 MG
     Route: 058
     Dates: start: 20190813
  25. ILARIS [Suspect]
     Active Substance: CANAKINUMAB
     Dosage: 150 MG
     Route: 058
     Dates: start: 20200312
  26. ILARIS [Suspect]
     Active Substance: CANAKINUMAB
     Dosage: 210 MG
     Route: 058
     Dates: start: 20190625
  27. ILARIS [Suspect]
     Active Substance: CANAKINUMAB
     Dosage: 240 MG
     Route: 058
     Dates: start: 20191106

REACTIONS (11)
  - Tonsillitis streptococcal [Recovered/Resolved]
  - Proteinuria [Recovering/Resolving]
  - Rhinorrhoea [Unknown]
  - Swelling face [Recovered/Resolved]
  - Urticaria [Recovered/Resolved]
  - Face injury [Recovering/Resolving]
  - Hypersensitivity [Unknown]
  - Upper respiratory tract inflammation [Recovering/Resolving]
  - Bronchitis [Recovered/Resolved]
  - Conjunctivitis allergic [Recovered/Resolved]
  - Obesity [Not Recovered/Not Resolved]

NARRATIVE: CASE EVENT DATE: 20181029
